FAERS Safety Report 10471548 (Version 1)
Quarter: 2014Q3

REPORT INFORMATION
  Report Type: Spontaneous
  Country: TW (occurrence: TW)
  Receive Date: 20140923
  Receipt Date: 20140923
  Transmission Date: 20150326
  Serious: Yes (Other)
  Sender: FDA-Public Use
  Company Number: ALCN2014TW005252

PATIENT
  Age: 55 Year
  Sex: Female

DRUGS (1)
  1. TRIESENCE [Suspect]
     Active Substance: TRIAMCINOLONE ACETONIDE
     Indication: SCLERITIS
     Dosage: 40 MG/ML, UNK
     Route: 065

REACTIONS (2)
  - Drug administered at inappropriate site [Unknown]
  - Optic neuropathy [Unknown]
